FAERS Safety Report 15558344 (Version 1)
Quarter: 2018Q4

REPORT INFORMATION
  Report Type: Spontaneous
  Country: IT (occurrence: IT)
  Receive Date: 20181028
  Receipt Date: 20181028
  Transmission Date: 20190205
  Serious: Yes (Hospitalization)
  Sender: FDA-Public Use
  Company Number: IT-DEXPHARM-20180809

PATIENT
  Age: 19 Year
  Sex: Female
  Weight: 0 kg

DRUGS (1)
  1. NEOXENE 10 MG OVULI [Suspect]
     Active Substance: CHLORHEXIDINE GLUCONATE
     Indication: INFECTION PROPHYLAXIS
     Dosage: IN TOTAL
     Route: 048
     Dates: start: 20180924, end: 20180924

REACTIONS (2)
  - Epigastric discomfort [Unknown]
  - Medication error [Recovering/Resolving]

NARRATIVE: CASE EVENT DATE: 20180924
